FAERS Safety Report 25611542 (Version 1)
Quarter: 2025Q3

REPORT INFORMATION
  Report Type: Spontaneous
  Country: US (occurrence: US)
  Receive Date: 20250728
  Receipt Date: 20250728
  Transmission Date: 20251021
  Serious: Yes (Death, Other)
  Sender: BAUSCH AND LOMB
  Company Number: US-MLMSERVICE-20250711-PI572643-00117-1

PATIENT
  Age: 62 Year
  Sex: Male

DRUGS (2)
  1. DEXAMETHASONE [Suspect]
     Active Substance: DEXAMETHASONE
     Indication: Chronic lymphocytic leukaemia
     Route: 065
  2. HUMAN IMMUNOGLOBULIN G [Concomitant]
     Active Substance: HUMAN IMMUNOGLOBULIN G
     Indication: Chronic lymphocytic leukaemia
     Route: 042

REACTIONS (6)
  - Disseminated cryptococcosis [Fatal]
  - Pneumonia cryptococcal [Fatal]
  - Aspergillus infection [Fatal]
  - Systemic mycosis [Fatal]
  - Aspergilloma [Fatal]
  - Posterior reversible encephalopathy syndrome [Unknown]
